FAERS Safety Report 5448428-5 (Version None)
Quarter: 2007Q3

REPORT INFORMATION
  Report Type: 
  Country: None (occurrence: None)
  Receive Date: 20070911
  Receipt Date: 20070831
  Transmission Date: 20080115
  Serious: Yes (Hospitalization)
  Sender: FDA-Public Use
  Company Number: US-JNJFOC-20070806646

PATIENT
  Sex: Male
  Weight: 40 kg

DRUGS (3)
  1. REMICADE [Suspect]
     Indication: INFLAMMATION
  2. 5-ASA [Concomitant]
     Route: 048
  3. 6MP [Concomitant]

REACTIONS (1)
  - GASTROENTERITIS [None]
